FAERS Safety Report 17179629 (Version 1)
Quarter: 2019Q4

REPORT INFORMATION
  Report Type: Spontaneous
  Country: DE (occurrence: DE)
  Receive Date: 20191220
  Receipt Date: 20191220
  Transmission Date: 20200122
  Serious: Yes (Other)
  Sender: FDA-Public Use
  Company Number: DE-SUN PHARMACEUTICAL INDUSTRIES LTD-2019RR-231394

PATIENT
  Age: 82 Year
  Sex: Female

DRUGS (13)
  1. MIRTAZAPIN [Suspect]
     Active Substance: MIRTAZAPINE
     Dosage: 45 MILLIGRAM, DAILY
     Route: 065
     Dates: start: 20180509, end: 20180509
  2. MIRTAZAPIN [Suspect]
     Active Substance: MIRTAZAPINE
     Dosage: 30 MILLIGRAM, DAILY
     Route: 065
     Dates: start: 20180510, end: 20180510
  3. RISPERIDON [Suspect]
     Active Substance: RISPERIDONE
     Indication: PRODUCT USED FOR UNKNOWN INDICATION
     Dosage: 2 MILLIGRAM
     Route: 065
     Dates: start: 20180425
  4. MIRTAZAPIN [Suspect]
     Active Substance: MIRTAZAPINE
     Indication: PRODUCT USED FOR UNKNOWN INDICATION
     Dosage: 15 MILLIGRAM, DAILY
     Route: 065
     Dates: start: 20180427, end: 20180502
  5. RAMIPRIL. [Concomitant]
     Active Substance: RAMIPRIL
     Indication: HYPERTONIA
     Dosage: EINNAHME SEIT LANGEREM, BIS AUF WEITERES
     Route: 065
  6. DORZOLAMID AUGENTROPFEN [Concomitant]
     Active Substance: DORZOLAMIDE
     Indication: GLAUCOMA
     Dosage: EINNAHME SEIT LANGEREM, BIS AUF WEITERES; 20MG/ML ()
     Route: 065
  7. VESIKUR [Suspect]
     Active Substance: SOLIFENACIN SUCCINATE
     Indication: HYPERTONIC BLADDER
     Dosage: EINNAHME SEIT LANGEREM
     Route: 065
     Dates: end: 20180319
  8. BISOPROLOL [Concomitant]
     Active Substance: BISOPROLOL
     Indication: PRODUCT USED FOR UNKNOWN INDICATION
     Dosage: 5 MILLIGRAM, DAILY
     Route: 065
     Dates: start: 20180501
  9. VESIKUR [Suspect]
     Active Substance: SOLIFENACIN SUCCINATE
     Dosage: EINNAHME BIS AUF WEITERES
     Route: 065
     Dates: start: 20180519
  10. MIRTAZAPIN [Suspect]
     Active Substance: MIRTAZAPINE
     Dosage: 30 MILLIGRAM, DAILY
     Route: 065
     Dates: start: 20180503, end: 20180508
  11. RISPERIDON [Suspect]
     Active Substance: RISPERIDONE
     Dosage: 3 MILLIGRAM
     Route: 065
     Dates: start: 20180405, end: 20180424
  12. RISPERIDON [Suspect]
     Active Substance: RISPERIDONE
     Dosage: 2 MILLIGRAM, DAILY
     Route: 065
     Dates: start: 20180319, end: 20180404
  13. VESIKUR [Suspect]
     Active Substance: SOLIFENACIN SUCCINATE
     Dosage: 2.5 MILLIGRAM
     Route: 065
     Dates: start: 20180320, end: 20180509

REACTIONS (1)
  - Urinary hesitation [Recovered/Resolved]

NARRATIVE: CASE EVENT DATE: 20180509
